FAERS Safety Report 23977380 (Version 1)
Quarter: 2024Q2

REPORT INFORMATION
  Report Type: Spontaneous
  Country: FR (occurrence: FR)
  Receive Date: 20240614
  Receipt Date: 20240614
  Transmission Date: 20240716
  Serious: Yes (Hospitalization)
  Sender: FDA-Public Use
  Company Number: None

PATIENT
  Age: 24 Year
  Sex: Female

DRUGS (7)
  1. FLUOXETINE HYDROCHLORIDE [Suspect]
     Active Substance: FLUOXETINE HYDROCHLORIDE
     Indication: Product used for unknown indication
     Dosage: UNK UNK, UNKNOWN
     Route: 048
     Dates: start: 20240528
  2. COCAINE [Suspect]
     Active Substance: COCAINE
     Indication: Product used for unknown indication
     Dosage: 1 G, UNKNOWN
     Route: 065
     Dates: start: 20240528
  3. ALPRAZOLAM [Suspect]
     Active Substance: ALPRAZOLAM
     Indication: Anxiety
     Dosage: 0.5 MG, DAILY (AROUND 30 CPR OF 0.5 MG)
     Route: 048
     Dates: start: 20240528
  4. VALPROMIDE [Suspect]
     Active Substance: VALPROMIDE
     Indication: Product used for unknown indication
     Dosage: 300 MG, OTHER (0-1-2; 20 CP OF 30 MG))
     Route: 048
     Dates: start: 20240528
  5. ALCOHOL [Suspect]
     Active Substance: ALCOHOL
     Indication: Product used for unknown indication
     Dosage: UNK UNK, UNKNOWN
     Route: 048
     Dates: start: 20240528
  6. PAROXETINE [Concomitant]
     Active Substance: PAROXETINE
     Indication: Product used for unknown indication
     Dosage: 60 MG, OTHER (0-0-3)
     Route: 065
  7. ZOPICLONE [Concomitant]
     Active Substance: ZOPICLONE
     Indication: Product used for unknown indication
     Dosage: 7.5 MG, OTHER (0-0-0-1)
     Route: 065

REACTIONS (7)
  - Tachycardia [Recovered/Resolved]
  - Hypokinesia [Recovered/Resolved]
  - Drug abuse [Unknown]
  - Toxicity to various agents [Recovered/Resolved]
  - Suicidal ideation [Recovering/Resolving]
  - Mydriasis [Recovered/Resolved]
  - Alcohol poisoning [Recovered/Resolved]

NARRATIVE: CASE EVENT DATE: 20240528
